FAERS Safety Report 6936906-9 (Version None)
Quarter: 2010Q3

REPORT INFORMATION
  Report Type: 
  Country: None (occurrence: None)
  Receive Date: 20100823
  Receipt Date: 20100813
  Transmission Date: 20110219
  Serious: Yes (Other)
  Sender: FDA-Public Use
  Company Number: AU-BRISTOL-MYERS SQUIBB COMPANY-15245731

PATIENT
  Age: 42 Year
  Sex: Male

DRUGS (3)
  1. EFAVIRENZ CAPS [Suspect]
     Route: 048
  2. BARACLUDE [Suspect]
     Route: 065
  3. TENOFOVIR DF + EMTRICITABINE [Suspect]
     Route: 065

REACTIONS (2)
  - DRUG RESISTANCE [None]
  - HEPATITIS B DNA INCREASED [None]
